FAERS Safety Report 6943918-8 (Version None)
Quarter: 2010Q3

REPORT INFORMATION
  Report Type: 
  Country: None (occurrence: None)
  Receive Date: 20100826
  Receipt Date: 20100823
  Transmission Date: 20110219
  Serious: Yes (Other)
  Sender: FDA-Public Use
  Company Number: B0663088A

PATIENT
  Sex: Male

DRUGS (6)
  1. ONDANSETRON [Suspect]
  2. COTRIM [Suspect]
  3. ETOPOSIDE [Suspect]
     Route: 048
  4. LOMUSTINE [Suspect]
  5. CHLORAMBUCIL [Suspect]
  6. DEXAMETHASONE [Suspect]

REACTIONS (1)
  - CARDIOMYOPATHY [None]
